FAERS Safety Report 5385429-X (Version None)
Quarter: 2007Q3

REPORT INFORMATION
  Report Type: 
  Country: None (occurrence: None)
  Receive Date: 20070706
  Receipt Date: 20070706
  Transmission Date: 20080115
  Serious: Yes (Life-Threatening, Hospitalization)
  Sender: FDA-Public Use
  Company Number: None

PATIENT
  Sex: Male
  Weight: 24 kg

DRUGS (1)
  1. HYDROXYUREA [Suspect]
     Indication: SICKLE CELL ANAEMIA
     Dosage: 500 MG QD ORAL
     Route: 048
     Dates: start: 20041101, end: 20070401

REACTIONS (5)
  - ANAEMIA [None]
  - B PRECURSOR TYPE ACUTE LEUKAEMIA [None]
  - PAIN [None]
  - PYREXIA [None]
  - THROMBOCYTOPENIA [None]
